FAERS Safety Report 10703878 (Version 3)
Quarter: 2015Q1

REPORT INFORMATION
  Report Type: Report from Study
  Country: AU (occurrence: AU)
  Receive Date: 20150112
  Receipt Date: 20150201
  Transmission Date: 20150721
  Serious: Yes (Hospitalization)
  Sender: FDA-Public Use
  Company Number: PHHO2014AU015467

PATIENT
  Age: 76 Year
  Sex: Male
  Weight: 61.9 kg

DRUGS (5)
  1. PANITUMUMAB [Suspect]
     Active Substance: PANITUMUMAB
     Indication: COLORECTAL CANCER METASTATIC
     Dosage: 410 MG
     Route: 042
     Dates: start: 20141106, end: 20141106
  2. PANITUMUMAB [Suspect]
     Active Substance: PANITUMUMAB
     Dosage: 330 MG, UNK
     Route: 042
     Dates: start: 20141211, end: 20141211
  3. IRINOTECAN [Suspect]
     Active Substance: IRINOTECAN
     Dosage: 225 MG, UNK
     Route: 042
     Dates: start: 20141211, end: 20141211
  4. IRINOTECAN [Suspect]
     Active Substance: IRINOTECAN
     Indication: COLORECTAL CANCER METASTATIC
     Dosage: 370 MG
     Route: 042
     Dates: start: 20141106, end: 20141106
  5. AFINITOR [Suspect]
     Active Substance: EVEROLIMUS
     Indication: COLORECTAL CANCER METASTATIC
     Dosage: 5 ML, QOD
     Route: 048
     Dates: start: 20141106, end: 20141120

REACTIONS (4)
  - Pyrexia [Unknown]
  - Dehydration [Unknown]
  - Mucosal inflammation [Unknown]
  - Hyperkalaemia [Not Recovered/Not Resolved]

NARRATIVE: CASE EVENT DATE: 20141115
